FAERS Safety Report 25359873 (Version 1)
Quarter: 2025Q2

REPORT INFORMATION
  Report Type: Spontaneous
  Country: US (occurrence: US)
  Receive Date: 20250526
  Receipt Date: 20250526
  Transmission Date: 20250716
  Serious: Yes (Hospitalization)
  Sender: ABBVIE
  Company Number: US-ABBVIE-6297602

PATIENT
  Age: 23 Year
  Sex: Female
  Weight: 79.378 kg

DRUGS (2)
  1. RINVOQ [Suspect]
     Active Substance: UPADACITINIB
     Indication: Crohn^s disease
     Dosage: 30 MILLIGRAM
     Route: 048
     Dates: start: 202411, end: 20250513
  2. OXYCODONE [Concomitant]
     Active Substance: OXYCODONE
     Indication: Pain

REACTIONS (12)
  - Condition aggravated [Recovered/Resolved]
  - Gastrointestinal inflammation [Recovering/Resolving]
  - Blood potassium decreased [Recovered/Resolved]
  - Anal haemorrhage [Recovered/Resolved]
  - Vitamin D decreased [Recovered/Resolved]
  - Nausea [Recovered/Resolved]
  - Fatigue [Not Recovered/Not Resolved]
  - Drug ineffective [Not Recovered/Not Resolved]
  - Abdominal pain [Recovered/Resolved]
  - Blood iron decreased [Recovered/Resolved]
  - Feeling abnormal [Recovered/Resolved]
  - Product quality issue [Recovering/Resolving]

NARRATIVE: CASE EVENT DATE: 20250101
